FAERS Safety Report 25012151 (Version 3)
Quarter: 2025Q1

REPORT INFORMATION
  Report Type: Spontaneous
  Country: US (occurrence: US)
  Receive Date: 20250226
  Receipt Date: 20250301
  Transmission Date: 20250409
  Serious: No
  Sender: NOVARTIS
  Company Number: US-002147023-NVSC2025US031939

PATIENT
  Sex: Female

DRUGS (1)
  1. KESIMPTA [Suspect]
     Active Substance: OFATUMUMAB
     Indication: Product used for unknown indication
     Route: 065

REACTIONS (3)
  - Device malfunction [Unknown]
  - Injection site discomfort [Unknown]
  - Nausea [Unknown]
